FAERS Safety Report 13226060 (Version 1)
Quarter: 2017Q1

REPORT INFORMATION
  Report Type: Spontaneous
  Country: US (occurrence: US)
  Receive Date: 20170213
  Receipt Date: 20170213
  Transmission Date: 20170428
  Serious: No
  Sender: FDA-Public Use
  Company Number: GXBR2016US002653

PATIENT
  Sex: Female

DRUGS (1)
  1. CLOBETASOL PROPIONATE. [Suspect]
     Active Substance: CLOBETASOL PROPIONATE
     Indication: SEBORRHOEIC DERMATITIS
     Dosage: UNK DF, BID
     Route: 061

REACTIONS (1)
  - Dizziness [Not Recovered/Not Resolved]

NARRATIVE: CASE EVENT DATE: 20160820
